FAERS Safety Report 14123825 (Version 6)
Quarter: 2020Q4

REPORT INFORMATION
  Report Type: Spontaneous
  Country: US (occurrence: US)
  Receive Date: 20171025
  Receipt Date: 20201211
  Transmission Date: 20210113
  Serious: No
  Sender: FDA-Public Use
  Company Number: US-009507513-1710USA003822

PATIENT
  Age: 52 Year
  Sex: Female

DRUGS (4)
  1. PROVENTIL [Suspect]
     Active Substance: ALBUTEROL
     Indication: ASTHMA
     Dosage: UNK, BID
     Route: 055
     Dates: start: 20201008, end: 20201022
  2. PROVENTIL [Suspect]
     Active Substance: ALBUTEROL
     Dosage: UNK, BID
     Route: 055
     Dates: start: 20201022
  3. PROVENTIL [Suspect]
     Active Substance: ALBUTEROL
     Indication: DYSPNOEA
     Dosage: 2 PUFFS Q 4-6 H, PRN
     Route: 055
     Dates: start: 20161102
  4. WIXELA INHUB [Concomitant]
     Active Substance: FLUTICASONE PROPIONATE\SALMETEROL XINAFOATE

REACTIONS (10)
  - Candida infection [Recovered/Resolved with Sequelae]
  - Product dose omission issue [Unknown]
  - Product quality issue [Unknown]
  - Extrasystoles [Recovered/Resolved]
  - Product use in unapproved indication [Unknown]
  - Feeling jittery [Recovered/Resolved]
  - Heart rate increased [Recovered/Resolved]
  - Product taste abnormal [Unknown]
  - Poor quality sleep [Unknown]
  - Poor quality device used [Unknown]

NARRATIVE: CASE EVENT DATE: 20161102
